FAERS Safety Report 6992405-X (Version None)
Quarter: 2010Q3

REPORT INFORMATION
  Report Type: 
  Country: None (occurrence: None)
  Receive Date: 20100916
  Receipt Date: 20100916
  Transmission Date: 20110219
  Serious: Yes (Other)
  Sender: FDA-Public Use
  Company Number: None

PATIENT
  Age: 27 Year
  Sex: Male
  Weight: 90.7194 kg

DRUGS (1)
  1. ADDERALL 20 [Suspect]
     Dosage: 20 MG 2 PO
     Route: 048

REACTIONS (9)
  - ALOPECIA [None]
  - CARDIOVASCULAR DISORDER [None]
  - DENTAL CARIES [None]
  - DENTAL PLAQUE [None]
  - DRY MOUTH [None]
  - GINGIVAL RECESSION [None]
  - IMPAIRED HEALING [None]
  - STRESS FRACTURE [None]
  - TIBIA FRACTURE [None]
